FAERS Safety Report 4285123-2 (Version None)
Quarter: 2004Q1

REPORT INFORMATION
  Report Type: 
  Country: None (occurrence: None)
  Receive Date: 20040204
  Receipt Date: 20040123
  Transmission Date: 20041129
  Serious: Yes (Hospitalization)
  Sender: FDA-Public Use
  Company Number: ES-GLAXOSMITHKLINE-B0321040A

PATIENT
  Age: 50 Year
  Sex: Female

DRUGS (5)
  1. AUGMENTIN '125' [Suspect]
     Route: 048
     Dates: start: 20030213, end: 20030316
  2. VOLTAREN [Suspect]
     Dosage: 150MG PER DAY
     Route: 048
     Dates: start: 20030125, end: 20030129
  3. ALDACTONE [Suspect]
     Dosage: 200MG PER DAY
     Route: 048
     Dates: start: 20030129, end: 20030316
  4. LACTULOSE [Concomitant]
     Dosage: 20G PER DAY
     Route: 048
  5. LANSOPRAZOLE [Concomitant]
     Dosage: 60MG PER DAY
     Route: 048

REACTIONS (1)
  - ENCEPHALOPATHY [None]
